FAERS Safety Report 8304384 (Version 3)
Quarter: 2014Q1

REPORT INFORMATION
  Report Type: Report from Study
  Country: US (occurrence: US)
  Receive Date: 20111221
  Receipt Date: 20140306
  Transmission Date: 20141002
  Serious: Yes (Other)
  Sender: FDA-Public Use
  Company Number: US-US-EMD SERONO, INC.-7102265

PATIENT
  Sex: Female
  Weight: 64 kg

DRUGS (8)
  1. REBIF [Suspect]
     Indication: MULTIPLE SCLEROSIS
     Route: 058
     Dates: start: 20050613, end: 201308
  2. CORTICOSTEROIDS [Suspect]
     Indication: PRODUCT USED FOR UNKNOWN INDICATION
  3. HYDROCODONE [Concomitant]
     Indication: ARTHRALGIA
  4. HYDROCODONE [Concomitant]
     Indication: BACK PAIN
  5. CYMBALTA [Concomitant]
     Indication: DEPRESSION
     Dates: start: 2009
  6. CYMBALTA [Concomitant]
     Indication: PAIN
  7. TIZANIDINE [Concomitant]
     Indication: MUSCLE RELAXANT THERAPY
     Dates: start: 2010
  8. KEPPRA [Concomitant]
     Indication: CONVULSION
     Dates: start: 2011

REACTIONS (8)
  - Osteonecrosis [Not Recovered/Not Resolved]
  - Fall [Unknown]
  - Stress [Unknown]
  - Multiple sclerosis relapse [Recovered/Resolved]
  - Influenza like illness [Not Recovered/Not Resolved]
  - Injection site pain [Not Recovered/Not Resolved]
  - Injection site erythema [Not Recovered/Not Resolved]
  - Injection site bruising [Not Recovered/Not Resolved]
